FAERS Safety Report 7432389-3 (Version None)
Quarter: 2011Q2

REPORT INFORMATION
  Report Type: 
  Country: None (occurrence: None)
  Receive Date: 20110415
  Receipt Date: 20110406
  Transmission Date: 20111010
  Serious: Yes (Hospitalization)
  Sender: FDA-Public Use
  Company Number: 2010SP014788

PATIENT
  Age: 27 Year
  Sex: Female
  Weight: 88.905 kg

DRUGS (1)
  1. NUVARING [Suspect]
     Indication: CONTRACEPTION
     Dates: start: 20080101, end: 20080305

REACTIONS (21)
  - THROMBOSIS [None]
  - VISION BLURRED [None]
  - MYALGIA [None]
  - OVARIAN CYST [None]
  - DYSPNOEA [None]
  - ASTHENIA [None]
  - PULMONARY EMBOLISM [None]
  - RESPIRATORY DISORDER [None]
  - EPISTAXIS [None]
  - LOSS OF CONSCIOUSNESS [None]
  - ASPARTATE AMINOTRANSFERASE INCREASED [None]
  - FATIGUE [None]
  - MOOD SWINGS [None]
  - ALANINE AMINOTRANSFERASE INCREASED [None]
  - SLEEP APNOEA SYNDROME [None]
  - PLEURITIC PAIN [None]
  - SNORING [None]
  - SOMNOLENCE [None]
  - DEPRESSION [None]
  - WEIGHT INCREASED [None]
  - BLOOD ALKALINE PHOSPHATASE INCREASED [None]
